FAERS Safety Report 11582870 (Version 3)
Quarter: 2015Q4

REPORT INFORMATION
  Report Type: Report from Study
  Country: BR (occurrence: BR)
  Receive Date: 20151001
  Receipt Date: 20151016
  Transmission Date: 20160304
  Serious: Yes (Life-Threatening, Other)
  Sender: FDA-Public Use
  Company Number: BR-AMGEN-BRASP2015100062

PATIENT
  Age: 6 Year
  Sex: Female

DRUGS (14)
  1. DOBUTAMINE [Concomitant]
     Active Substance: DOBUTAMINE\DOBUTAMINE HYDROCHLORIDE
     Dosage: 5 MUG/KG/MIN, CONT
     Route: 042
     Dates: start: 20150924
  2. ESOMEPRAZOL                        /01479301/ [Concomitant]
     Active Substance: ESOMEPRAZOLE
     Dosage: 20 MG, QD
     Route: 042
     Dates: start: 20150911
  3. NORADRENALIN                       /00127501/ [Concomitant]
     Dosage: 0.05 MG/KG/MIN, CONT
     Route: 042
     Dates: start: 20150924
  4. VITAMIN K [Concomitant]
     Active Substance: PHYTONADIONE
     Dosage: 10 MG, QD
     Route: 042
     Dates: start: 20150924, end: 20150924
  5. BLINATUMOMAB [Suspect]
     Active Substance: BLINATUMOMAB
     Indication: ACUTE LYMPHOCYTIC LEUKAEMIA
     Dosage: 4.35 MUG, QD
     Route: 042
     Dates: start: 20150923
  6. ALBUMIN [Concomitant]
     Active Substance: ALBUMIN (HUMAN)
     Dosage: 50 ML, QD
     Route: 042
     Dates: start: 20150924
  7. MEROPENEM. [Concomitant]
     Active Substance: MEROPENEM
     Dosage: 1000 MG, QD
     Route: 042
     Dates: start: 20150917
  8. SULFAMETOXAZOL + TRIMETOPRIMA [Concomitant]
     Dosage: 200/40 UNK, 3 TIMES/WK
     Route: 048
     Dates: start: 20150729
  9. DIPIRONE [Concomitant]
     Active Substance: METAMIZOLE SODIUM
     Dosage: 500 MG, Q4H
     Route: 042
     Dates: start: 20150924
  10. AMPHOTERICIN B, LIPOSOME [Concomitant]
     Active Substance: AMPHOTERICIN B
     Dosage: 75 MG, QD
     Route: 042
     Dates: start: 20150924
  11. DIPHENHYDRAMINE. [Concomitant]
     Active Substance: DIPHENHYDRAMINE
     Dosage: 25 MG, Q4H
     Route: 042
     Dates: start: 20150924
  12. OXCARBAZEPINE. [Concomitant]
     Active Substance: OXCARBAZEPINE
     Dosage: 300 MG, Q12H
     Route: 048
     Dates: start: 20150906
  13. VANCOMYCIN [Concomitant]
     Active Substance: VANCOMYCIN
     Dosage: 500 MG, QD
     Route: 042
     Dates: start: 20150908
  14. ONDANSETRONE ACCORD HEALTHCARE [Concomitant]
     Dosage: 4 MG, Q8H
     Route: 042
     Dates: start: 20150917

REACTIONS (4)
  - Pyrexia [Not Recovered/Not Resolved]
  - Hepatotoxicity [Not Recovered/Not Resolved]
  - Oedema [Not Recovered/Not Resolved]
  - Hypotension [Not Recovered/Not Resolved]

NARRATIVE: CASE EVENT DATE: 20150923
